FAERS Safety Report 12744131 (Version 1)
Quarter: 2016Q3

REPORT INFORMATION
  Report Type: Other
  Country: SE (occurrence: SE)
  Receive Date: 20160914
  Receipt Date: 20160914
  Transmission Date: 20161109
  Serious: Yes (Hospitalization, Other)
  Sender: FDA-Public Use
  Company Number: SE-TAKEDA-2016TUS015420

PATIENT
  Age: 28 Year
  Sex: Male

DRUGS (4)
  1. AZATHIOPRINE. [Concomitant]
     Active Substance: AZATHIOPRINE
     Dates: start: 2013
  2. PENTASA [Concomitant]
     Active Substance: MESALAMINE
     Dates: start: 2013
  3. ZYLORIC [Concomitant]
     Active Substance: ALLOPURINOL
     Dates: start: 2013
  4. ENTYVIO [Suspect]
     Active Substance: VEDOLIZUMAB
     Indication: COLITIS ULCERATIVE
     Dosage: 300 MG, UNK
     Route: 042
     Dates: start: 20150701

REACTIONS (1)
  - Cytomegalovirus colitis [Not Recovered/Not Resolved]

NARRATIVE: CASE EVENT DATE: 20160718
